FAERS Safety Report 16042640 (Version 2)
Quarter: 2019Q2

REPORT INFORMATION
  Report Type: Spontaneous
  Country: JP (occurrence: JP)
  Receive Date: 20190306
  Receipt Date: 20190610
  Transmission Date: 20190711
  Serious: Yes (Life-Threatening, Hospitalization, Other)
  Sender: FDA-Public Use
  Company Number: JP-009507513-1901JPN001142J

PATIENT
  Age: 76 Year
  Sex: Male
  Weight: 68 kg

DRUGS (9)
  1. EDIROL [Concomitant]
     Active Substance: ELDECALCITOL
     Dosage: 1CAPSULE, QD
     Route: 048
  2. METHYCOBAL [Concomitant]
     Active Substance: METHYLCOBALAMIN
     Dosage: 3 DOSAGE FORM, TID
     Route: 048
  3. THYRADIN S [Concomitant]
     Active Substance: LEVOTHYROXINE SODIUM
     Dosage: 1 DOSAGE FORM, QD
     Route: 048
  4. KEYTRUDA [Suspect]
     Active Substance: PEMBROLIZUMAB
     Indication: TRANSITIONAL CELL CARCINOMA
     Dosage: 200 MILLIGRAM
     Route: 041
     Dates: start: 20181115, end: 20181207
  5. CARBAZOCHROME [Concomitant]
     Active Substance: CARBAZOCHROME
     Dosage: 3 DOSAGE FORM, TID
     Route: 048
  6. JANUVIA [Concomitant]
     Active Substance: SITAGLIPTIN PHOSPHATE
     Dosage: 1 DOSAGE FORM, QD
     Route: 048
  7. GLUFAST [Concomitant]
     Active Substance: MITIGLINIDE
     Dosage: 3 DOSAGE FORM, TID
     Route: 048
  8. SAIREITO [Concomitant]
     Active Substance: HERBALS
     Dosage: 2PACKS, TWICE/DAY
     Route: 048
  9. MYTELASE [Concomitant]
     Active Substance: AMBENONIUM CHLORIDE
     Dosage: 1.5 DOSAGE FORM, TID
     Route: 048

REACTIONS (6)
  - Iron deficiency anaemia [Recovering/Resolving]
  - Blood creatine phosphokinase increased [Recovering/Resolving]
  - Hypothyroidism [Recovering/Resolving]
  - Myasthenia gravis [Recovering/Resolving]
  - Hypokalaemia [Recovering/Resolving]
  - Renal tubular disorder [Recovering/Resolving]

NARRATIVE: CASE EVENT DATE: 201812
